FAERS Safety Report 20481313 (Version 3)
Quarter: 2022Q2

REPORT INFORMATION
  Report Type: Spontaneous
  Country: US (occurrence: US)
  Receive Date: 20220216
  Receipt Date: 20220626
  Transmission Date: 20220720
  Serious: No
  Sender: FDA-Public Use
  Company Number: US-BRISTOL-MYERS SQUIBB COMPANY-BMS-2022-022452

PATIENT
  Age: 59 Year
  Sex: Female

DRUGS (3)
  1. ORENCIA [Suspect]
     Active Substance: ABATACEPT
     Indication: Rheumatoid arthritis
     Dosage: 125 MILLIGRAM, QWK
     Route: 058
     Dates: start: 202106
  2. ORENCIA [Suspect]
     Active Substance: ABATACEPT
     Indication: Systemic lupus erythematosus
     Dosage: 125 MILLIGRAM, QWK
     Route: 058
     Dates: start: 20210608
  3. ORENCIA [Suspect]
     Active Substance: ABATACEPT
     Route: 058
     Dates: start: 20210608

REACTIONS (2)
  - Joint swelling [Unknown]
  - Arthralgia [Unknown]

NARRATIVE: CASE EVENT DATE: 20220101
